FAERS Safety Report 18087194 (Version 1)
Quarter: 2020Q3

REPORT INFORMATION
  Report Type: Spontaneous
  Country: US (occurrence: US)
  Receive Date: 20200729
  Receipt Date: 20200729
  Transmission Date: 20201103
  Serious: No
  Sender: FDA-Public Use
  Company Number: US-BEH-2020120520

PATIENT
  Sex: Female

DRUGS (1)
  1. HIZENTRA [Suspect]
     Active Substance: HUMAN IMMUNOGLOBULIN G
     Indication: IMMUNODEFICIENCY COMMON VARIABLE
     Dosage: 10 GRAM, QW
     Route: 058
     Dates: start: 202004

REACTIONS (5)
  - Incorrect dosage administered [Unknown]
  - Therapy interrupted [Unknown]
  - Frustration tolerance decreased [Unknown]
  - No adverse event [Unknown]
  - Product dose omission issue [Unknown]
